FAERS Safety Report 9053271 (Version 8)
Quarter: 2013Q3

REPORT INFORMATION
  Report Type: Spontaneous
  Country: US (occurrence: US)
  Receive Date: 20130207
  Receipt Date: 20130717
  Transmission Date: 20140515
  Serious: Yes (Other)
  Sender: FDA-Public Use
  Company Number: US-009507513-1302USA001450

PATIENT
  Age: 59 Year
  Sex: Male

DRUGS (5)
  1. PEGINTRON [Suspect]
     Indication: HEPATITIS C
     Dosage: UNK
     Dates: start: 20130118
  2. REBETOL [Suspect]
     Indication: HEPATITIS C
     Dosage: 5 CAPSULE A DAY
     Route: 048
     Dates: start: 20130118, end: 201305
  3. REBETOL [Suspect]
     Dosage: 4 CAPSULE A DAY
     Route: 048
     Dates: start: 201305
  4. REBETOL [Suspect]
     Dosage: 3 CAPSULE A DAY
     Route: 048
     Dates: start: 2013
  5. VICTRELIS [Suspect]
     Indication: HEPATITIS C
     Dosage: UNK
     Route: 048
     Dates: start: 20130215

REACTIONS (31)
  - Anaemia [Unknown]
  - Anaemia [Unknown]
  - Transfusion [Unknown]
  - Nausea [Unknown]
  - Dizziness [Unknown]
  - Dehydration [Unknown]
  - Chills [Unknown]
  - Skin disorder [Unknown]
  - Influenza like illness [Unknown]
  - Injection site reaction [Unknown]
  - Decreased appetite [Unknown]
  - Dyspnoea [Unknown]
  - Fatigue [Unknown]
  - Anaemia [Unknown]
  - Memory impairment [Unknown]
  - Hypoaesthesia [Unknown]
  - Anaemia [Unknown]
  - Haemoglobin decreased [Unknown]
  - Decreased appetite [Unknown]
  - Weight decreased [Unknown]
  - Transfusion [Unknown]
  - Dyspnoea [Unknown]
  - Anxiety [Unknown]
  - Frustration [Unknown]
  - Depression [Unknown]
  - Alopecia [Unknown]
  - Dyspnoea [Unknown]
  - Anaemia [Unknown]
  - Nausea [Unknown]
  - Fatigue [Unknown]
  - Pruritus [Unknown]
